FAERS Safety Report 14637251 (Version 1)
Quarter: 2018Q1

REPORT INFORMATION
  Report Type: Spontaneous
  Country: SE (occurrence: SE)
  Receive Date: 20180314
  Receipt Date: 20180314
  Transmission Date: 20180509
  Serious: Yes (Other)
  Sender: FDA-Public Use
  Company Number: SE-PFIZER INC-2018103597

PATIENT
  Age: 52 Year
  Sex: Female

DRUGS (7)
  1. ESTRADOT [Concomitant]
     Active Substance: ESTRADIOL
  2. CITALOPRAM [Concomitant]
     Active Substance: CITALOPRAM HYDROBROMIDE
  3. LEVAXIN [Concomitant]
     Active Substance: LEVOTHYROXINE SODIUM
  4. IPREN [Concomitant]
     Active Substance: IBUPROFEN
  5. TRANEXAMSYRA [Concomitant]
  6. ALVEDON [Concomitant]
     Active Substance: ACETAMINOPHEN
  7. PROVERA [Suspect]
     Active Substance: MEDROXYPROGESTERONE ACETATE
     Indication: MENOPAUSAL SYMPTOMS
     Dosage: 10 MG, UNK
     Dates: start: 20180223, end: 20180304

REACTIONS (5)
  - Depressed mood [Unknown]
  - Abdominal pain [Unknown]
  - Asthenia [Unknown]
  - Haemorrhage [Unknown]
  - Tinnitus [Unknown]

NARRATIVE: CASE EVENT DATE: 20180307
